FAERS Safety Report 7992621-4 (Version None)
Quarter: 2011Q4

REPORT INFORMATION
  Report Type: 
  Country: None (occurrence: None)
  Receive Date: 20111219
  Receipt Date: 20110401
  Transmission Date: 20120403
  Serious: No
  Sender: FDA-Public Use
  Company Number: US-ASTRAZENECA-2011SE18867

PATIENT
  Age: 68 Year
  Sex: Female
  Weight: 64.4 kg

DRUGS (3)
  1. CRESTOR [Suspect]
     Indication: BLOOD CHOLESTEROL INCREASED
     Route: 048
     Dates: start: 20110331
  2. PRAVASTATIN [Concomitant]
     Dates: start: 20110301, end: 20110301
  3. DIOVAN [Concomitant]

REACTIONS (4)
  - MUSCULOSKELETAL PAIN [None]
  - NECK PAIN [None]
  - HEADACHE [None]
  - NAUSEA [None]
